FAERS Safety Report 5134664-4 (Version None)
Quarter: 2006Q4

REPORT INFORMATION
  Report Type: 
  Country: None (occurrence: None)
  Receive Date: 20061025
  Receipt Date: 20061017
  Transmission Date: 20070319
  Serious: Yes (Death)
  Sender: FDA-Public Use
  Company Number: FR-GLAXOSMITHKLINE-B0443514A

PATIENT
  Age: 2 Year
  Sex: Female
  Weight: 12 kg

DRUGS (6)
  1. ZOVIRAX [Suspect]
     Dosage: 250MG FOUR TIMES PER DAY
     Route: 048
     Dates: start: 20060401
  2. BACTRIM [Suspect]
     Dosage: 6ML THREE TIMES PER WEEK
     Route: 048
     Dates: start: 20060301
  3. FUMAFER [Suspect]
     Dosage: 33MG TWICE PER DAY
     Route: 048
     Dates: start: 20060301
  4. UVESTEROL [Suspect]
     Route: 048
  5. PROGRAF [Suspect]
     Dosage: .8MG TWICE PER DAY
     Route: 048
     Dates: start: 20060301
  6. SPECIAFOLDINE [Suspect]
     Dosage: 5MG THREE TIMES PER WEEK
     Route: 048
     Dates: start: 20060301

REACTIONS (8)
  - ANGIONEUROTIC OEDEMA [None]
  - BREATH SOUNDS ABNORMAL [None]
  - CARDIO-RESPIRATORY ARREST [None]
  - CYANOSIS [None]
  - FACE OEDEMA [None]
  - HYPOXIA [None]
  - LARYNGEAL OEDEMA [None]
  - VOMITING [None]
